FAERS Safety Report 6685942-9 (Version None)
Quarter: 2010Q2

REPORT INFORMATION
  Report Type: 
  Country: None (occurrence: None)
  Receive Date: 20100415
  Receipt Date: 20100415
  Transmission Date: 20101027
  Serious: Yes (Hospitalization)
  Sender: FDA-Public Use
  Company Number: None

PATIENT
  Age: 69 Year
  Sex: Female
  Weight: 62.1 kg

DRUGS (10)
  1. BEVACIZUMAB [Suspect]
     Indication: NON-SMALL CELL LUNG CANCER
     Dosage: 15MG/KG, IV DAY1 Q3W
     Route: 042
     Dates: start: 20100119
  2. DEXAMETHASONE [Concomitant]
  3. PROCHLORPERAZINE [Concomitant]
  4. LISINOPRIL [Concomitant]
  5. FOLIC ACID [Concomitant]
  6. VIT D [Concomitant]
  7. DIPHENHYDRAMINE HCL [Concomitant]
  8. PROPRANOLOL [Concomitant]
  9. HYDROCHLOROTHIAZIDE [Concomitant]
  10. MULTI-VITAMIN [Concomitant]

REACTIONS (1)
  - ATRIAL FIBRILLATION [None]
